FAERS Safety Report 4657882-8 (Version None)
Quarter: 2005Q2

REPORT INFORMATION
  Report Type: 
  Country: None (occurrence: None)
  Receive Date: 20050510
  Receipt Date: 20050422
  Transmission Date: 20051028
  Serious: Yes (Death, Hospitalization, Other)
  Sender: FDA-Public Use
  Company Number: PHEH2005US04686

PATIENT
  Age: 40 Year
  Sex: Male
  Weight: 119 kg

DRUGS (1)
  1. CLOZARIL [Suspect]
     Indication: SCHIZOPHRENIA
     Dosage: 125MG QAM, 250MG QPM
     Route: 048
     Dates: start: 19900101

REACTIONS (18)
  - ABSCESS DRAINAGE [None]
  - BACTERIAL INFECTION [None]
  - CHEST WALL ABSCESS [None]
  - CONVULSION [None]
  - CORONARY ARTERY DISEASE [None]
  - COUGH [None]
  - DEEP VEIN THROMBOSIS [None]
  - DRUG LEVEL INCREASED [None]
  - INTUBATION [None]
  - LOSS OF CONSCIOUSNESS [None]
  - LUNG INFILTRATION [None]
  - PNEUMONIA BACTERIAL [None]
  - PULMONARY EMBOLISM [None]
  - PURULENT DISCHARGE [None]
  - PYREXIA [None]
  - SPUTUM ABNORMAL [None]
  - TACHYCARDIA [None]
  - WHITE BLOOD CELL COUNT INCREASED [None]
